FAERS Safety Report 25585521 (Version 1)
Quarter: 2025Q3

REPORT INFORMATION
  Report Type: Spontaneous
  Country: KR (occurrence: KR)
  Receive Date: 20250721
  Receipt Date: 20250721
  Transmission Date: 20251021
  Serious: Yes (Other)
  Sender: MYLAN
  Company Number: KR-MYLANLABS-2025M1060453

PATIENT
  Sex: Female
  Weight: 53 kg

DRUGS (12)
  1. LYRICA [Suspect]
     Active Substance: PREGABALIN
     Indication: Product used for unknown indication
     Dosage: 1 DOSAGE FORM, BID
     Dates: start: 20230407, end: 20230411
  2. LYRICA [Suspect]
     Active Substance: PREGABALIN
     Dosage: 1 DOSAGE FORM, BID
     Route: 065
     Dates: start: 20230407, end: 20230411
  3. LYRICA [Suspect]
     Active Substance: PREGABALIN
     Dosage: 1 DOSAGE FORM, BID
     Route: 065
     Dates: start: 20230407, end: 20230411
  4. LYRICA [Suspect]
     Active Substance: PREGABALIN
     Dosage: 1 DOSAGE FORM, BID
     Dates: start: 20230407, end: 20230411
  5. PELUBIPROFEN [Suspect]
     Active Substance: PELUBIPROFEN
     Indication: Product used for unknown indication
     Dosage: 1 DOSAGE FORM, BID
     Dates: start: 20230407, end: 20230411
  6. PELUBIPROFEN [Suspect]
     Active Substance: PELUBIPROFEN
     Dosage: 1 DOSAGE FORM, BID
     Route: 065
     Dates: start: 20230407, end: 20230411
  7. PELUBIPROFEN [Suspect]
     Active Substance: PELUBIPROFEN
     Dosage: 1 DOSAGE FORM, BID
     Route: 065
     Dates: start: 20230407, end: 20230411
  8. PELUBIPROFEN [Suspect]
     Active Substance: PELUBIPROFEN
     Dosage: 1 DOSAGE FORM, BID
     Dates: start: 20230407, end: 20230411
  9. LIMAPROST [Suspect]
     Active Substance: LIMAPROST
     Indication: Product used for unknown indication
     Dosage: 1 DOSAGE FORM, QD
     Dates: start: 20230407, end: 20230407
  10. LIMAPROST [Suspect]
     Active Substance: LIMAPROST
     Dosage: 1 DOSAGE FORM, QD
     Route: 065
     Dates: start: 20230407, end: 20230407
  11. LIMAPROST [Suspect]
     Active Substance: LIMAPROST
     Dosage: 1 DOSAGE FORM, QD
     Route: 065
     Dates: start: 20230407, end: 20230407
  12. LIMAPROST [Suspect]
     Active Substance: LIMAPROST
     Dosage: 1 DOSAGE FORM, QD
     Dates: start: 20230407, end: 20230407

REACTIONS (3)
  - Depressed level of consciousness [Recovering/Resolving]
  - Eye oedema [Recovering/Resolving]
  - Dizziness [Recovering/Resolving]

NARRATIVE: CASE EVENT DATE: 20230407
